FAERS Safety Report 14807774 (Version 1)
Quarter: 2018Q2

REPORT INFORMATION
  Report Type: Spontaneous
  Country: FR (occurrence: FR)
  Receive Date: 20180425
  Receipt Date: 20180425
  Transmission Date: 20180711
  Serious: Yes (Hospitalization)
  Sender: FDA-Public Use
  Company Number: FR-PFIZER INC-2018164826

PATIENT
  Age: 35 Year
  Sex: Female
  Weight: 90 kg

DRUGS (2)
  1. DAUNORUBICINE [Suspect]
     Active Substance: DAUNORUBICIN
     Indication: LEUKAEMIA
     Dosage: UNK
     Dates: start: 2006, end: 2006
  2. CYTARABINE. [Suspect]
     Active Substance: CYTARABINE
     Indication: LEUKAEMIA
     Dosage: UNK
     Dates: start: 2006, end: 2006

REACTIONS (1)
  - Cardiac failure [Not Recovered/Not Resolved]

NARRATIVE: CASE EVENT DATE: 201802
